FAERS Safety Report 9706285 (Version 1)
Quarter: 2013Q4

REPORT INFORMATION
  Report Type: Spontaneous
  Country: FR (occurrence: FR)
  Receive Date: 20131125
  Receipt Date: 20131125
  Transmission Date: 20140711
  Serious: Yes (Hospitalization)
  Sender: FDA-Public Use
  Company Number: FR-BIOGENIDEC-2013BI112792

PATIENT
  Age: 45 Year
  Sex: Female
  Weight: 45 kg

DRUGS (11)
  1. TYSABRI [Suspect]
     Indication: MULTIPLE SCLEROSIS
     Route: 042
     Dates: start: 201305, end: 20131010
  2. VALSARTAN [Concomitant]
     Route: 048
     Dates: end: 20131001
  3. VALSARTAN [Concomitant]
     Route: 048
     Dates: start: 201310
  4. LAROXYL [Concomitant]
     Route: 048
     Dates: end: 20131008
  5. EPITOMAX [Concomitant]
     Route: 048
  6. EUPRESSYL [Concomitant]
  7. LYRICA [Concomitant]
     Dates: end: 20131008
  8. LYRICA [Concomitant]
  9. LYRICA [Concomitant]
  10. AVLOCARDYL [Concomitant]
  11. NARCAN [Concomitant]
     Indication: SOMNOLENCE
     Dates: start: 201310, end: 201310

REACTIONS (3)
  - Hyperbilirubinaemia [Recovered/Resolved]
  - Cholestasis [Recovered/Resolved]
  - Hepatocellular injury [Not Recovered/Not Resolved]
